FAERS Safety Report 8761985 (Version 1)
Quarter: 2012Q4

REPORT INFORMATION
  Report Type: 
  Country: US (occurrence: US)
  Receive Date: 20120903
  Receipt Date: 20120903
  Transmission Date: 20130627
  Serious: Yes (Hospitalization)
  Sender: FDA-Public Use
  Company Number: US-PFIZER INC-2012208736

PATIENT
  Age: 88 Year
  Sex: Female
  Weight: 48.98 kg

DRUGS (8)
  1. DILANTIN [Suspect]
     Indication: CONVULSION
     Dosage: 100 mg, 1x/day in the morning
     Route: 048
     Dates: start: 20050312
  2. DILANTIN-125 [Suspect]
     Indication: CONVULSION
     Dosage: 125 mg, 1x/day at night
     Route: 048
     Dates: start: 20050312
  3. KEPPRA XR [Concomitant]
     Dosage: UNK
  4. ISOSORBIDE [Concomitant]
     Dosage: UNK
  5. METOPROLOL [Concomitant]
     Dosage: UNK
  6. LIPITOR [Concomitant]
     Dosage: UNK
  7. LEVOTHYROXINE [Concomitant]
     Dosage: UNK
  8. ARICEPT [Concomitant]
     Dosage: UNK

REACTIONS (4)
  - Liver disorder [Not Recovered/Not Resolved]
  - Hepatic mass [Not Recovered/Not Resolved]
  - Vomiting [Unknown]
  - Medication residue [Unknown]
